FAERS Safety Report 7824451-8 (Version None)
Quarter: 2011Q4

REPORT INFORMATION
  Report Type: 
  Country: None (occurrence: None)
  Receive Date: 20111018
  Receipt Date: 20111018
  Transmission Date: 20120403
  Serious: No
  Sender: FDA-Public Use
  Company Number: None

PATIENT
  Sex: Female
  Weight: 82.1011 kg

DRUGS (3)
  1. PT. HAS BEEN TAKING NEXIUM FOR 10 YRS. [Concomitant]
  2. ZANTAC 150 [Suspect]
     Indication: DYSPEPSIA
     Dosage: ONE TABLET / DAY
  3. OMEPRAZOLE [Suspect]
     Indication: GASTROOESOPHAGEAL REFLUX DISEASE

REACTIONS (2)
  - DRUG INEFFECTIVE [None]
  - ABDOMINAL DISCOMFORT [None]
